FAERS Safety Report 9377590 (Version 2)
Quarter: 2013Q3

REPORT INFORMATION
  Report Type: Spontaneous
  Country: GB (occurrence: None)
  Receive Date: 20130625
  Receipt Date: 20130702
  Transmission Date: 20140515
  Serious: Yes (Disabling)
  Sender: FDA-Public Use
  Company Number: AUR-APL-2013-04942

PATIENT
  Age: 70 Year
  Sex: Female

DRUGS (4)
  1. IRBESARTAN [Suspect]
     Indication: HYPERTENSION
     Route: 048
  2. BENDROFLUMETHIAZIDE (BENDROFLUMETHIAZIDE) [Concomitant]
  3. DOXYCYCLINE [Concomitant]
  4. OMEPRAZOLE (OMEPRAZOLE) [Concomitant]

REACTIONS (4)
  - Musculoskeletal pain [None]
  - Activities of daily living impaired [None]
  - Impaired driving ability [None]
  - Gait disturbance [None]
